FAERS Safety Report 9553403 (Version 1)
Quarter: 2013Q2

REPORT INFORMATION
  Report Type: Spontaneous
  Country: NL (occurrence: None)
  Receive Date: 20130405
  Receipt Date: 20130405
  Transmission Date: 20140414
  Serious: Yes (Other)
  Sender: FDA-Public Use
  Company Number: 2012P1021445

PATIENT
  Age: 24 Year
  Sex: Female

DRUGS (7)
  1. AMMONUL [Suspect]
  2. LMW HEPARIN [Concomitant]
  3. AMINO ACID SUPPLEMENTATION [Concomitant]
  4. CITRULLINE [Concomitant]
  5. VITAMIN B6 [Concomitant]
  6. CALCIUM [Concomitant]
  7. FOLIC ACID [Concomitant]

REACTIONS (2)
  - Hyperammonaemia [None]
  - Respiratory tract infection [None]
